FAERS Safety Report 9249637 (Version 1)
Quarter: 2013Q2

REPORT INFORMATION
  Report Type: Spontaneous
  Country: FR (occurrence: FR)
  Receive Date: 20130423
  Receipt Date: 20130423
  Transmission Date: 20140414
  Serious: Yes (Hospitalization)
  Sender: FDA-Public Use
  Company Number: FR-TEVA-399609ISR

PATIENT
  Age: 72 Year
  Sex: Female

DRUGS (2)
  1. TRAMADOL TEVA [Suspect]
     Indication: PAIN
     Dosage: 2 DOSAGE FORMS DAILY;
     Route: 048
     Dates: start: 20130416, end: 201304
  2. ALCOHOL [Interacting]

REACTIONS (4)
  - Alcohol interaction [Unknown]
  - Oropharyngeal pain [Unknown]
  - Chest pain [Unknown]
  - Musculoskeletal chest pain [Unknown]
